FAERS Safety Report 5493533-0 (Version None)
Quarter: 2007Q4

REPORT INFORMATION
  Report Type: 
  Country: None (occurrence: None)
  Receive Date: 20071023
  Receipt Date: 20071012
  Transmission Date: 20080405
  Serious: Yes (Other)
  Sender: FDA-Public Use
  Company Number: CA-SHR-CA-2007-038592

PATIENT
  Age: 52 Year
  Sex: Female
  Weight: 50 kg

DRUGS (3)
  1. BETASERON [Suspect]
     Indication: RELAPSING-REMITTING MULTIPLE SCLEROSIS
     Dosage: 8 MIU, EVERY 2D
     Route: 058
     Dates: start: 20030520
  2. TYLENOL (CAPLET) [Concomitant]
     Route: 048
  3. EYE DROPS [Concomitant]
     Route: 047

REACTIONS (2)
  - AMNESIA [None]
  - NERVOUS SYSTEM DISORDER [None]
